FAERS Safety Report 9230540 (Version 1)
Quarter: 2013Q2

REPORT INFORMATION
  Report Type: Spontaneous
  Country: US (occurrence: US)
  Receive Date: 20130415
  Receipt Date: 20130415
  Transmission Date: 20140414
  Serious: Yes (Other)
  Sender: FDA-Public Use
  Company Number: US-BRISTOL-MYERS SQUIBB COMPANY-18754010

PATIENT
  Age: 4 Decade
  Sex: Female

DRUGS (2)
  1. ABILIFY [Suspect]
  2. CYMBALTA [Suspect]
     Dosage: 60-90MG

REACTIONS (1)
  - Mania [Unknown]
